FAERS Safety Report 18921422 (Version 2)
Quarter: 2021Q3

REPORT INFORMATION
  Report Type: Spontaneous
  Country: FR (occurrence: FR)
  Receive Date: 20210222
  Receipt Date: 20210707
  Transmission Date: 20211014
  Serious: Yes (Hospitalization)
  Sender: FDA-Public Use
  Company Number: FR-MYLANLABS-2021M1009617

PATIENT
  Age: 26 Year
  Sex: Female

DRUGS (4)
  1. PARACETAMOL [Suspect]
     Active Substance: ACETAMINOPHEN
     Indication: PRODUCT USED FOR UNKNOWN INDICATION
     Dosage: AT THERAPEUTIC AND LIMITED DOSES.
     Route: 065
  2. ALMOTRIPTAN. [Suspect]
     Active Substance: ALMOTRIPTAN
     Indication: MIGRAINE WITH AURA
     Dosage: PRESCRIBED DOSE WAS 12.5MG....
     Route: 048
  3. ESOMEPRAZOLE. [Suspect]
     Active Substance: ESOMEPRAZOLE MAGNESIUM
     Indication: PRODUCT USED FOR UNKNOWN INDICATION
     Dosage: AT THERAPEUTIC AND LIMITED DOSES.
     Route: 065
  4. VERAPAMIL [Suspect]
     Active Substance: VERAPAMIL HYDROCHLORIDE
     Indication: PROPHYLAXIS
     Dosage: UNK UNK, QD
     Route: 048

REACTIONS (11)
  - Drug abuse [Unknown]
  - Hypoperfusion [Unknown]
  - Placental disorder [Unknown]
  - Foetal growth restriction [Unknown]
  - Premature delivery [Unknown]
  - Vasoconstriction [Unknown]
  - Maternal exposure during pregnancy [Recovered/Resolved]
  - Placental calcification [Unknown]
  - Oligohydramnios [Unknown]
  - Ultrasound uterus abnormal [Unknown]
  - Intentional overdose [Unknown]
